FAERS Safety Report 12754849 (Version 1)
Quarter: 2016Q3

REPORT INFORMATION
  Report Type: Report from Study
  Country: US (occurrence: US)
  Receive Date: 20160916
  Receipt Date: 20160916
  Transmission Date: 20161109
  Serious: Yes (Hospitalization, Other)
  Sender: FDA-Public Use
  Company Number: US-GILEAD-2016-0233447

PATIENT
  Sex: Female

DRUGS (1)
  1. RANOLAZINE [Suspect]
     Active Substance: RANOLAZINE
     Indication: PRODUCT USED FOR UNKNOWN INDICATION
     Dosage: 500 MG, UNK
     Route: 048

REACTIONS (7)
  - Circulatory collapse [Unknown]
  - Weight decreased [Unknown]
  - Arterial occlusive disease [Unknown]
  - Pyrexia [Unknown]
  - Hypercholesterolaemia [Unknown]
  - Unevaluable event [Unknown]
  - Breast cancer [Unknown]
